FAERS Safety Report 23638665 (Version 6)
Quarter: 2024Q3

REPORT INFORMATION
  Report Type: Spontaneous
  Country: ES (occurrence: ES)
  Receive Date: 20240315
  Receipt Date: 20240726
  Transmission Date: 20241017
  Serious: Yes (Life-Threatening, Hospitalization, Other)
  Sender: RANBAXY
  Company Number: ES-SUN PHARMACEUTICAL INDUSTRIES LTD-2024R1-436734

PATIENT
  Age: 52 Year
  Sex: Female

DRUGS (10)
  1. CIPROFLOXACIN [Suspect]
     Active Substance: CIPROFLOXACIN
     Indication: Antibiotic therapy
  2. CIPROFLOXACIN [Suspect]
     Active Substance: CIPROFLOXACIN
     Dosage: UNK
     Route: 065
  3. MEROPENEM [Suspect]
     Active Substance: MEROPENEM
     Indication: Product used for unknown indication
     Dosage: UNK
     Route: 065
  4. OMEPRAZOLE [Suspect]
     Active Substance: OMEPRAZOLE
     Indication: Product used for unknown indication
     Dosage: HIGH DOSE, BID
     Route: 065
  5. VANCOMYCIN [Suspect]
     Active Substance: VANCOMYCIN
     Indication: Product used for unknown indication
     Dosage: UNK
     Route: 065
  6. AVIBACTAM SODIUM\CEFTAZIDIME [Suspect]
     Active Substance: AVIBACTAM SODIUM\CEFTAZIDIME
     Indication: Product used for unknown indication
     Dosage: UNK
     Route: 065
  7. CIPROFLOXACIN [Concomitant]
     Active Substance: CIPROFLOXACIN
     Indication: Antibiotic therapy
     Dosage: UNK
     Route: 065
  8. CLOXACILLIN [Concomitant]
     Active Substance: CLOXACILLIN
     Indication: Antibiotic therapy
     Dosage: UNK
     Route: 065
  9. MEROPENEM [Concomitant]
     Active Substance: MEROPENEM
     Indication: Evidence based treatment
     Dosage: UNK
     Route: 065
  10. VANCOMYCIN [Concomitant]
     Active Substance: VANCOMYCIN
     Indication: Evidence based treatment
     Dosage: UNK
     Route: 065

REACTIONS (5)
  - Drug reaction with eosinophilia and systemic symptoms [Recovering/Resolving]
  - Interstitial lung disease [Recovering/Resolving]
  - Acute respiratory distress syndrome [Recovering/Resolving]
  - Multiple organ dysfunction syndrome [Recovering/Resolving]
  - Pleural effusion [Recovering/Resolving]
